FAERS Safety Report 4425063-9 (Version None)
Quarter: 2004Q3

REPORT INFORMATION
  Report Type: 
  Country: None (occurrence: None)
  Receive Date: 20040811
  Receipt Date: 20040811
  Transmission Date: 20050211
  Serious: No
  Sender: FDA-Public Use
  Company Number: None

PATIENT
  Age: 55 Year
  Sex: Male
  Weight: 174 kg

DRUGS (1)
  1. ZOSYN [Suspect]
     Dosage: 4.5GM  Q8H  INTRAVENOUS
     Route: 042
     Dates: start: 20040512, end: 20040607

REACTIONS (2)
  - CHILLS [None]
  - PYREXIA [None]
